FAERS Safety Report 9501934 (Version 6)
Quarter: 2014Q4

REPORT INFORMATION
  Report Type: Report from Study
  Country: US (occurrence: US)
  Receive Date: 20130905
  Receipt Date: 20141128
  Transmission Date: 20150529
  Serious: Yes (Hospitalization)
  Sender: FDA-Public Use
  Company Number: US-ACTELION-A-US2013-87635

PATIENT
  Age: 63 Year
  Sex: Female

DRUGS (2)
  1. VENTAVIS [Suspect]
     Active Substance: ILOPROST
     Indication: PULMONARY ARTERIAL HYPERTENSION
     Dosage: UNK
     Route: 055
  2. TRACLEER [Suspect]
     Active Substance: BOSENTAN\BOSENTAN MONOHYDRATE
     Indication: PULMONARY ARTERIAL HYPERTENSION
     Dosage: UNK
     Route: 048

REACTIONS (9)
  - Dizziness [Unknown]
  - Ureteral stent insertion [Unknown]
  - Dyspnoea [Unknown]
  - Blood urine present [Unknown]
  - Contusion [Unknown]
  - Fall [Unknown]
  - Urinary tract infection [Unknown]
  - Kidney infection [Unknown]
  - Urinary control neurostimulator implantation [Unknown]
